FAERS Safety Report 10195228 (Version 1)
Quarter: 2014Q2

REPORT INFORMATION
  Report Type: Spontaneous
  Country: US (occurrence: US)
  Receive Date: 20140526
  Receipt Date: 20140526
  Transmission Date: 20141212
  Serious: No
  Sender: FDA-Public Use
  Company Number: US-009507513-1405USA011833

PATIENT
  Age: 22 Year
  Sex: Female
  Weight: 78.5 kg

DRUGS (1)
  1. NEXPLANON [Suspect]
     Indication: CONTRACEPTION
     Dosage: DOSE/FREQUENCY-68MG/ONCE EVERY THREE YEARS
     Dates: start: 20130920, end: 20140521

REACTIONS (2)
  - Menstrual disorder [Recovering/Resolving]
  - Device kink [Unknown]
